FAERS Safety Report 10396335 (Version 1)
Quarter: 2014Q3

REPORT INFORMATION
  Report Type: Spontaneous
  Country: DE (occurrence: None)
  Receive Date: 20140818
  Receipt Date: 20140818
  Transmission Date: 20150326
  Serious: Yes (Other)
  Sender: FDA-Public Use
  Company Number: 2014DE0335

PATIENT
  Age: 28 Month

DRUGS (1)
  1. NITISINONE (NITISINONE) [Suspect]
     Active Substance: NITISINONE
     Indication: TYROSINAEMIA

REACTIONS (1)
  - Cardiomyopathy [None]
